FAERS Safety Report 4967077-6 (Version None)
Quarter: 2006Q2

REPORT INFORMATION
  Report Type: 
  Country: None (occurrence: None)
  Receive Date: 20060410
  Receipt Date: 20060405
  Transmission Date: 20061013
  Serious: Yes (Hospitalization, Other)
  Sender: FDA-Public Use
  Company Number: US-RB-3083-2006

PATIENT
  Age: 49 Year
  Sex: Male

DRUGS (1)
  1. BUPRENORPHINE, NALOXONE [Suspect]
     Route: 060
     Dates: start: 20060211

REACTIONS (3)
  - CONSTIPATION [None]
  - IMPAIRED GASTRIC EMPTYING [None]
  - VOMITING [None]
